FAERS Safety Report 10015908 (Version 1)
Quarter: 2014Q1

REPORT INFORMATION
  Report Type: Spontaneous
  Country: US (occurrence: US)
  Receive Date: 20140317
  Receipt Date: 20140317
  Transmission Date: 20141002
  Serious: No
  Sender: FDA-Public Use
  Company Number: US-JNJFOC-20140210169

PATIENT
  Sex: Male
  Weight: 122.47 kg

DRUGS (2)
  1. INVEGA SUSTENNA [Suspect]
     Indication: PRODUCT USED FOR UNKNOWN INDICATION
     Route: 030
     Dates: start: 20131213
  2. DIOVAN [Concomitant]
     Indication: BLOOD PRESSURE
     Route: 048

REACTIONS (2)
  - Headache [Not Recovered/Not Resolved]
  - Anger [Not Recovered/Not Resolved]
